FAERS Safety Report 8392760-2 (Version None)
Quarter: 2012Q2

REPORT INFORMATION
  Report Type: 
  Country: None (occurrence: None)
  Receive Date: 20120529
  Receipt Date: 20111104
  Transmission Date: 20120825
  Serious: No
  Sender: FDA-Public Use
  Company Number: US-MYLANLABS-2011S1020968

PATIENT
  Age: 60 Year
  Sex: Male

DRUGS (11)
  1. AMITRIPTYLINE HCL [Suspect]
     Indication: DEPRESSION
     Dosage: DOSING VARIES. USED TABLETS FOR 1-2 DAYS THEN DOESN'T USE FOR 1-4 DAYS THEN BEGINS AGAIN.
     Route: 048
     Dates: start: 20110101, end: 20110721
  2. AMITRIPTYLINE HCL [Suspect]
     Dosage: OFF 2-3 DAYS THEN USES 3-4 DAYS IN A ROW.
     Route: 048
     Dates: start: 20110721
  3. DIAZEPAM [Suspect]
  4. ATENOLOL [Suspect]
  5. LORAZEPAM [Suspect]
  6. HYDROXYZINE [Suspect]
  7. ATIVAN [Concomitant]
  8. AMITRIPTYLINE HCL [Suspect]
     Route: 048
     Dates: start: 20110101
  9. HYDROXYZINE [Concomitant]
  10. DIAZEPAM [Concomitant]
  11. ATENOLOL [Concomitant]

REACTIONS (3)
  - THERAPEUTIC RESPONSE UNEXPECTED [None]
  - HAIR GROWTH ABNORMAL [None]
  - HAIR COLOUR CHANGES [None]
